FAERS Safety Report 17005611 (Version 1)
Quarter: 2019Q4

REPORT INFORMATION
  Report Type: Spontaneous
  Country: PL (occurrence: PL)
  Receive Date: 20191107
  Receipt Date: 20191107
  Transmission Date: 20200122
  Serious: Yes (Hospitalization)
  Sender: FDA-Public Use
  Company Number: PL-ASTRAZENECA-2019SF57723

PATIENT
  Age: 2 Month

DRUGS (1)
  1. SYNAGIS [Suspect]
     Active Substance: PALIVIZUMAB
     Indication: PRODUCT USED FOR UNKNOWN INDICATION
     Dosage: 0.5 ML FIRST DOSE: RIGHT THIGH
     Route: 030
     Dates: start: 20190220

REACTIONS (8)
  - Crying [Recovering/Resolving]
  - Cyanosis [Recovering/Resolving]
  - Gaze palsy [Recovering/Resolving]
  - Hypotonia [Recovering/Resolving]
  - Seizure [Recovering/Resolving]
  - Salivary hypersecretion [Recovering/Resolving]
  - Somnolence [Recovering/Resolving]
  - Apnoea [Recovering/Resolving]

NARRATIVE: CASE EVENT DATE: 20190225
